FAERS Safety Report 12722293 (Version 1)
Quarter: 2016Q3

REPORT INFORMATION
  Report Type: Report from Study
  Country: US (occurrence: US)
  Receive Date: 20160907
  Receipt Date: 20160907
  Transmission Date: 20161109
  Serious: Yes (Congenital Anomaly)
  Sender: FDA-Public Use
  Company Number: US-PFIZER INC-2016336242

PATIENT

DRUGS (2)
  1. PYRIBENZAMINE [Suspect]
     Active Substance: TRIPELENNAMINE HYDROCHLORIDE
     Dosage: UNK
     Route: 064
  2. PENTAZOCINE LACTATE [Suspect]
     Active Substance: PENTAZOCINE LACTATE
     Dosage: UNK
     Route: 064

REACTIONS (2)
  - Maternal exposure during pregnancy [Unknown]
  - Deformity [Unknown]
